FAERS Safety Report 5265461-7 (Version None)
Quarter: 2007Q1

REPORT INFORMATION
  Report Type: 
  Country: None (occurrence: None)
  Receive Date: 20070314
  Receipt Date: 20070305
  Transmission Date: 20070707
  Serious: Yes (Death)
  Sender: FDA-Public Use
  Company Number: KR-GILEAD-2007-0011460

PATIENT
  Age: 39 Year
  Sex: Male

DRUGS (5)
  1. ADEFOVIR DIPIVOXIL [Suspect]
     Indication: HEPATITIS B
     Route: 048
     Dates: start: 20061122
  2. PANTOPRAZOLE SODIUM [Concomitant]
     Dates: start: 20061206, end: 20061219
  3. FURSEMIDE [Concomitant]
     Dates: start: 20061122
  4. ITOPRIDE HYDROCHLORIDE [Concomitant]
     Dates: start: 20061127
  5. URSA [Concomitant]
     Dates: start: 20061204

REACTIONS (2)
  - HEPATIC FAILURE [None]
  - VARICES OESOPHAGEAL [None]
